FAERS Safety Report 9581837 (Version 3)
Quarter: 2013Q4

REPORT INFORMATION
  Report Type: Report from Study
  Country: US (occurrence: US)
  Receive Date: 20131002
  Receipt Date: 20131107
  Transmission Date: 20140711
  Serious: Yes (Life-Threatening, Hospitalization, Other)
  Sender: FDA-Public Use
  Company Number: US-ABBVIE-13P-163-1137718-00

PATIENT
  Age: 53 Year
  Sex: Male

DRUGS (2)
  1. HUMIRA [Suspect]
     Indication: PSORIASIS
     Dates: start: 20130617
  2. STEROID CREAM [Concomitant]
     Indication: PSORIASIS

REACTIONS (10)
  - Cerebral haemorrhage [Not Recovered/Not Resolved]
  - Accident [Not Recovered/Not Resolved]
  - Cerebral haematoma [Not Recovered/Not Resolved]
  - Concussion [Not Recovered/Not Resolved]
  - Laceration [Not Recovered/Not Resolved]
  - Lumbar vertebral fracture [Not Recovered/Not Resolved]
  - Thrombosis [Not Recovered/Not Resolved]
  - Aspiration [Not Recovered/Not Resolved]
  - Wound infection [Not Recovered/Not Resolved]
  - Psoriasis [Unknown]
